FAERS Safety Report 18927569 (Version 1)
Quarter: 2021Q1

REPORT INFORMATION
  Report Type: Spontaneous
  Country: US (occurrence: US)
  Receive Date: 20210223
  Receipt Date: 20210223
  Transmission Date: 20210420
  Serious: No
  Sender: FDA-Public Use
  Company Number: US-TAKEDA-2021TUS011248

PATIENT
  Sex: Female

DRUGS (1)
  1. GAMMAGARD LIQUID [Suspect]
     Active Substance: HUMAN IMMUNOGLOBULIN G
     Indication: HYPERGLOBULINAEMIA
     Dosage: 7.5 GRAM, Q2WEEKS
     Route: 065
     Dates: start: 201910

REACTIONS (3)
  - Infusion site mass [Unknown]
  - Infusion site bruising [Unknown]
  - Infusion site swelling [Unknown]
